FAERS Safety Report 8788812 (Version 2)
Quarter: 2012Q4

REPORT INFORMATION
  Report Type: 
  Country: US (occurrence: US)
  Receive Date: 20120915
  Receipt Date: 20120926
  Transmission Date: 20130627
  Serious: Yes (Other)
  Sender: FDA-Public Use
  Company Number: US-ABBOTT-12P-163-0978139-00

PATIENT
  Sex: Male
  Weight: 67.65 kg

DRUGS (4)
  1. CREON [Suspect]
     Indication: PANCREATIC INSUFFICIENCY
     Dosage: Take 1-2 capsules with meals.
     Route: 048
     Dates: start: 201112
  2. PLAVIX [Concomitant]
     Indication: PRODUCT USED FOR UNKNOWN INDICATION
  3. SIMVASTATIN [Concomitant]
     Indication: PRODUCT USED FOR UNKNOWN INDICATION
  4. BABY ASA [Concomitant]
     Indication: PRODUCT USED FOR UNKNOWN INDICATION

REACTIONS (3)
  - Hepatic neoplasm [Not Recovered/Not Resolved]
  - Pancreatic neoplasm [Not Recovered/Not Resolved]
  - Diabetes mellitus [Not Recovered/Not Resolved]
